FAERS Safety Report 6986081-X (Version None)
Quarter: 2010Q3

REPORT INFORMATION
  Report Type: 
  Country: None (occurrence: None)
  Receive Date: 20100910
  Receipt Date: 20100831
  Transmission Date: 20110219
  Serious: Yes (Other)
  Sender: FDA-Public Use
  Company Number: DSU-2010-04557

PATIENT
  Sex: Female

DRUGS (2)
  1. WELCHOL [Suspect]
     Indication: GLYCOSYLATED HAEMOGLOBIN INCREASED
     Dosage: PER ORAL
     Route: 047
  2. WELCHOL [Suspect]
     Indication: HYPERCHOLESTEROLAEMIA
     Dosage: PER ORAL
     Route: 047

REACTIONS (1)
  - APPENDICITIS [None]
